FAERS Safety Report 15802990 (Version 1)
Quarter: 2019Q1

REPORT INFORMATION
  Report Type: Spontaneous
  Country: US (occurrence: US)
  Receive Date: 20190109
  Receipt Date: 20190109
  Transmission Date: 20190417
  Serious: Yes (Hospitalization, Other)
  Sender: FDA-Public Use
  Company Number: US-IMPAX LABORATORIES, LLC-2018-IPXL-04475

PATIENT
  Age: 35 Year
  Sex: Male

DRUGS (4)
  1. ADRENACLICK [Suspect]
     Active Substance: EPINEPHRINE
     Indication: ALLERGY TO ARTHROPOD STING
     Dosage: 0.3 MILLILITER, SINGLE  (1:1,000)
     Route: 030
  2. ADRENACLICK [Suspect]
     Active Substance: EPINEPHRINE
     Dosage: 1.0 MILLILITER, SINGLE (1:10,000), 2 DOSES
     Route: 042
  3. ADRENACLICK [Suspect]
     Active Substance: EPINEPHRINE
     Dosage: 0.5 MILLILITER, SINGLE (1:1,000), 2 DOSES
     Route: 030
  4. ALBUTEROL                          /00139501/ [Concomitant]
     Active Substance: ALBUTEROL
     Indication: PRODUCT USED FOR UNKNOWN INDICATION
     Dosage: UNK
     Route: 065

REACTIONS (2)
  - Myocardial stunning [Recovered/Resolved]
  - Ventricular hypokinesia [Recovered/Resolved]
